FAERS Safety Report 11656428 (Version 3)
Quarter: 2016Q1

REPORT INFORMATION
  Report Type: Spontaneous
  Country: IT (occurrence: IT)
  Receive Date: 20151023
  Receipt Date: 20160225
  Transmission Date: 20160525
  Serious: Yes (Other)
  Sender: FDA-Public Use
  Company Number: IT-009507513-1510ITA008645

PATIENT
  Age: 43 Year
  Sex: Male
  Weight: 75 kg

DRUGS (4)
  1. INTELENCE [Concomitant]
     Active Substance: ETRAVIRINE
     Indication: ASYMPTOMATIC HIV INFECTION
     Dosage: 400 MG, UNK
     Route: 048
     Dates: start: 20150507, end: 20150928
  2. LORANS [Concomitant]
     Active Substance: LORAZEPAM
     Indication: ANXIETY
     Dosage: 7.5 MG, UNK
     Route: 048
  3. ISENTRESS [Suspect]
     Active Substance: RALTEGRAVIR POTASSIUM
     Indication: ASYMPTOMATIC HIV INFECTION
     Dosage: 800MG DAILY
     Route: 048
     Dates: start: 20150507, end: 20150928
  4. FEVARIN [Concomitant]
     Active Substance: FLUVOXAMINE MALEATE
     Indication: DEPRESSION
     Dosage: 300 MG, UNK
     Route: 048

REACTIONS (3)
  - Tinnitus [Recovering/Resolving]
  - Muscle spasms [Recovering/Resolving]
  - Non-24-hour sleep-wake disorder [Recovering/Resolving]

NARRATIVE: CASE EVENT DATE: 20150928
